FAERS Safety Report 24030006 (Version 2)
Quarter: 2024Q3

REPORT INFORMATION
  Report Type: Spontaneous
  Country: US (occurrence: US)
  Receive Date: 20240628
  Receipt Date: 20240710
  Transmission Date: 20241017
  Serious: No
  Sender: CALLIDITAS THERAPEUTICS
  Company Number: US-Calliditas-2024CAL01123

PATIENT
  Age: 65 Year
  Sex: Male
  Weight: 101.0 kg

DRUGS (1)
  1. TARPEYO [Suspect]
     Active Substance: BUDESONIDE
     Indication: Haematuria
     Route: 048
     Dates: start: 20240524

REACTIONS (3)
  - Blood glucose increased [Unknown]
  - Off label use [Unknown]
  - Blood glucose decreased [Unknown]
